FAERS Safety Report 21989961 (Version 3)
Quarter: 2023Q2

REPORT INFORMATION
  Report Type: Spontaneous
  Country: JP (occurrence: JP)
  Receive Date: 20230214
  Receipt Date: 20230519
  Transmission Date: 20230722
  Serious: Yes (Hospitalization, Other)
  Sender: FDA-Public Use
  Company Number: JP-MYLANLABS-2023M1014347

PATIENT
  Age: 43 Year
  Sex: Female
  Weight: 66.6 kg

DRUGS (37)
  1. EFFEXOR XR [Suspect]
     Active Substance: VENLAFAXINE HYDROCHLORIDE
     Indication: Depression
     Dosage: 150 MILLIGRAM, QD (EVENING)
     Route: 048
     Dates: start: 20230128
  2. EFFEXOR XR [Suspect]
     Active Substance: VENLAFAXINE HYDROCHLORIDE
     Dosage: 150 MILLIGRAM, QD (EVENING)
     Route: 048
     Dates: start: 20230203, end: 20230205
  3. ANHIBA [Suspect]
     Active Substance: ACETAMINOPHEN
     Indication: Pain
     Dosage: 200 MILLIGRAM, QD
     Route: 054
     Dates: start: 20230131, end: 20230201
  4. ACETAMINOPHEN\TRAMADOL HYDROCHLORIDE [Suspect]
     Active Substance: ACETAMINOPHEN\TRAMADOL HYDROCHLORIDE
     Indication: Depression
     Dosage: 1 DOSAGE FORM, TID
     Route: 048
     Dates: start: 20230128, end: 20230205
  5. FLUNITRAZEPAM [Suspect]
     Active Substance: FLUNITRAZEPAM
     Indication: Product used for unknown indication
     Dosage: 2 MILLIGRAM, QD
     Route: 048
     Dates: start: 20230128, end: 20230204
  6. SULPIRIDE [Suspect]
     Active Substance: SULPIRIDE
     Indication: Product used for unknown indication
     Dosage: 100 MILLIGRAM, QD
     Route: 048
     Dates: start: 20230128, end: 20230205
  7. AMITIZA [Suspect]
     Active Substance: LUBIPROSTONE
     Indication: Constipation
     Dosage: 24 MICROGRAM
     Route: 048
     Dates: start: 20230128, end: 20230205
  8. JARDIANCE [Suspect]
     Active Substance: EMPAGLIFLOZIN
     Indication: Product used for unknown indication
     Dosage: 25 MILLIGRAM, QD
     Route: 048
     Dates: start: 20230203, end: 20230204
  9. LORATADINE [Suspect]
     Active Substance: LORATADINE
     Indication: Urticaria
     Dosage: 10 MILLIGRAM, QD
     Route: 048
     Dates: start: 20230128, end: 20230205
  10. ATORVASTATIN CALCIUM TRIHYDRATE [Suspect]
     Active Substance: ATORVASTATIN CALCIUM TRIHYDRATE
     Indication: Hyperlipidaemia
     Dosage: 10 MILLIGRAM, QD
     Route: 048
     Dates: start: 20230128, end: 20230205
  11. FEXOFENADINE [Suspect]
     Active Substance: FEXOFENADINE HYDROCHLORIDE
     Indication: Urticaria
     Dosage: 60 MILLIGRAM, QD (MORNING)
     Route: 048
     Dates: start: 20230128, end: 20230205
  12. METGLUCO [Suspect]
     Active Substance: METFORMIN HYDROCHLORIDE
     Indication: Product used for unknown indication
     Dosage: 1500 MILLIGRAM, QD
     Route: 048
     Dates: end: 20230202
  13. VONOPRAZAN FUMARATE [Suspect]
     Active Substance: VONOPRAZAN FUMARATE
     Indication: Gastrooesophageal reflux disease
     Dosage: 10 MILLIGRAM, QD (EVENING)
     Route: 048
     Dates: start: 20230128, end: 20230205
  14. CHLORPROMAZINE [Suspect]
     Active Substance: CHLORPROMAZINE
     Indication: Product used for unknown indication
     Dosage: 100 MILLIGRAM, QD
     Route: 048
  15. ARIPIPRAZOLE [Suspect]
     Active Substance: ARIPIPRAZOLE
     Indication: Product used for unknown indication
     Dosage: 3 MILLIGRAM, QD
     Route: 048
     Dates: start: 20230203, end: 20230205
  16. IMEGLIMIN [Suspect]
     Active Substance: IMEGLIMIN
     Indication: Product used for unknown indication
     Dosage: 2000 MILLIGRAM, QD
     Route: 065
  17. LEVOMEPROMAZINE [Suspect]
     Active Substance: LEVOMEPROMAZINE
     Indication: Insomnia
     Dosage: 5 MILLIGRAM, PRN
     Route: 048
     Dates: end: 20230202
  18. ESTAZOLAM [Suspect]
     Active Substance: ESTAZOLAM
     Indication: Product used for unknown indication
     Dosage: 4 MILLIGRAM, QD
     Route: 048
     Dates: start: 20230203, end: 20230205
  19. RAMELTEON [Suspect]
     Active Substance: RAMELTEON
     Indication: Product used for unknown indication
     Dosage: 8 MILLIGRAM, QD
     Route: 048
     Dates: start: 20220203, end: 20230205
  20. RYBELSUS [Suspect]
     Active Substance: SEMAGLUTIDE
     Indication: Type 2 diabetes mellitus
     Dosage: 14 MILLIGRAM, QD (ON RISING)
     Route: 048
     Dates: start: 20230128
  21. ABILIFY [Concomitant]
     Active Substance: ARIPIPRAZOLE
     Indication: Depression
     Dosage: 3 MILLIGRAM, QD (EVENING)
     Route: 048
     Dates: start: 20230128
  22. DISTIGMINE BROMIDE [Concomitant]
     Active Substance: DISTIGMINE BROMIDE
     Indication: Neurogenic bladder
     Dosage: 5 MILLIGRAM, QD
     Route: 048
     Dates: start: 20230128, end: 20230205
  23. TELMISARTAN [Concomitant]
     Active Substance: TELMISARTAN
     Indication: Hypertension
     Dosage: 40 MILLIGRAM, QD
     Route: 048
     Dates: start: 20230128, end: 20230205
  24. CHLORPROMAZINE [Concomitant]
     Active Substance: CHLORPROMAZINE
     Indication: Product used for unknown indication
     Dosage: 100 MILLIGRAM, QD
     Route: 048
     Dates: start: 20230128
  25. Eurodin [Concomitant]
     Indication: Insomnia
     Dosage: 4 MILLIGRAM, QD (BEFORE BED)
     Route: 048
     Dates: start: 20230128
  26. ROZEREM [Concomitant]
     Active Substance: RAMELTEON
     Indication: Insomnia
     Dosage: 8 MILLIGRAM, QD (BEFORE BED)
     Route: 048
     Dates: start: 20230128
  27. TIZANIDINE [Concomitant]
     Active Substance: TIZANIDINE
     Indication: Headache
     Dosage: 1 MILLIGRAM, QD (BEFORE BED)
     Route: 065
     Dates: start: 20230128, end: 20230206
  28. DULOXETINE [Concomitant]
     Active Substance: DULOXETINE
     Indication: Product used for unknown indication
     Dosage: 60 MILLIGRAM, QD
     Route: 048
  29. SULPIRIDE [Concomitant]
     Active Substance: SULPIRIDE
     Indication: Product used for unknown indication
     Dosage: 25 MILLIGRAM, BID
     Route: 048
     Dates: end: 20230202
  30. CLARITIN [Concomitant]
     Active Substance: LORATADINE
     Indication: Product used for unknown indication
     Dosage: 10 MILLIGRAM, QD
     Route: 048
  31. IMEGLIMIN HYDROCHLORIDE [Concomitant]
     Active Substance: IMEGLIMIN HYDROCHLORIDE
     Indication: Product used for unknown indication
     Dosage: 1000 MILLIGRAM, BID
     Route: 048
     Dates: start: 20230128, end: 20230204
  32. BROTIZOLAM [Concomitant]
     Active Substance: BROTIZOLAM
     Indication: Product used for unknown indication
     Dosage: 0.25 MILLIGRAM, QD
     Route: 048
  33. LOXOPROFEN SODIUM [Concomitant]
     Active Substance: LOXOPROFEN SODIUM
     Indication: Product used for unknown indication
     Dosage: 10 MILLIGRAM, QD
     Route: 048
  34. SENNOSIDES [Concomitant]
     Active Substance: SENNOSIDES
     Indication: Constipation
     Dosage: 24 MILLIGRAM
     Route: 048
     Dates: start: 20230203, end: 20230205
  35. CHLORPROMAZINE [Concomitant]
     Active Substance: CHLORPROMAZINE
     Indication: Product used for unknown indication
     Dosage: 100 MILLIGRAM, QD
     Route: 048
     Dates: start: 20230203, end: 20230205
  36. METFORMIN HYDROCHLORIDE [Concomitant]
     Active Substance: METFORMIN HYDROCHLORIDE
     Indication: Product used for unknown indication
     Dosage: 375 MILLIGRAM, QD
     Route: 048
     Dates: start: 20220203, end: 20220204
  37. BISACODYL [Concomitant]
     Active Substance: BISACODYL
     Indication: Product used for unknown indication
     Dosage: 10 MILLIGRAM
     Route: 054
     Dates: start: 20220204, end: 20220204

REACTIONS (3)
  - Diabetic ketoacidosis [Recovered/Resolved]
  - Lactic acidosis [Recovered/Resolved]
  - Urinary tract infection [Recovering/Resolving]

NARRATIVE: CASE EVENT DATE: 20230207
